FAERS Safety Report 17766897 (Version 2)
Quarter: 2020Q3

REPORT INFORMATION
  Report Type: Spontaneous
  Country: US (occurrence: US)
  Receive Date: 20200511
  Receipt Date: 20200708
  Transmission Date: 20201102
  Serious: Yes (Hospitalization)
  Sender: FDA-Public Use
  Company Number: US-BIOGEN-2020BI00873635

PATIENT
  Age: 52 Year

DRUGS (1)
  1. TYSABRI [Suspect]
     Active Substance: NATALIZUMAB
     Indication: PRODUCT USED FOR UNKNOWN INDICATION
     Route: 065

REACTIONS (6)
  - Pleural effusion [Unknown]
  - Pericardial effusion [Unknown]
  - Dyspnoea [Unknown]
  - Lung consolidation [Unknown]
  - Pulmonary embolism [Unknown]
  - Body temperature increased [Unknown]
